FAERS Safety Report 25159496 (Version 1)
Quarter: 2025Q2

REPORT INFORMATION
  Report Type: Spontaneous
  Country: PL (occurrence: PL)
  Receive Date: 20250404
  Receipt Date: 20250404
  Transmission Date: 20250717
  Serious: Yes (Life-Threatening, Hospitalization, Other)
  Sender: AUROBINDO
  Company Number: PL-URPL-DML-MLP.4401.1.3326.2021

PATIENT
  Age: 24 Year
  Sex: Male
  Weight: 70 kg

DRUGS (2)
  1. LAMOTRIGINE [Suspect]
     Active Substance: LAMOTRIGINE
     Indication: Product used for unknown indication
     Route: 048
     Dates: start: 20210713
  2. CITALOPRAM [Suspect]
     Active Substance: CITALOPRAM
     Indication: Product used for unknown indication
     Route: 048
     Dates: start: 20210713

REACTIONS (4)
  - Suicide attempt [Recovered/Resolved]
  - Somnolence [Recovered/Resolved]
  - Balance disorder [Recovered/Resolved]
  - Tremor [Recovered/Resolved]
